FAERS Safety Report 25427092 (Version 2)
Quarter: 2025Q3

REPORT INFORMATION
  Report Type: Spontaneous
  Country: US (occurrence: US)
  Receive Date: 20250612
  Receipt Date: 20250702
  Transmission Date: 20251020
  Serious: Yes (Other)
  Sender: ABBVIE
  Company Number: US-ABBVIE-6323244

PATIENT
  Sex: Female

DRUGS (1)
  1. REFRESH CLASSIC [Suspect]
     Active Substance: POLYVINYL ALCOHOL\POVIDONE
     Indication: Product used for unknown indication
     Route: 047
     Dates: start: 2015

REACTIONS (7)
  - Macular degeneration [Unknown]
  - Dry eye [Unknown]
  - Cataract [Unknown]
  - Product colour issue [Not Recovered/Not Resolved]
  - Eye laser surgery [Unknown]
  - Eye injury [Unknown]
  - Liquid product physical issue [Not Recovered/Not Resolved]
